FAERS Safety Report 10231073 (Version 1)
Quarter: 2014Q2

REPORT INFORMATION
  Report Type: Spontaneous
  Country: AU (occurrence: AU)
  Receive Date: 20140611
  Receipt Date: 20140611
  Transmission Date: 20141212
  Serious: Yes (Other)
  Sender: FDA-Public Use
  Company Number: AU-SA-2014SA070488

PATIENT
  Age: 86 Year
  Sex: Female

DRUGS (3)
  1. AVAPRO [Suspect]
     Indication: PRODUCT USED FOR UNKNOWN INDICATION
     Route: 065
  2. MINIPRESS [Suspect]
     Indication: HYPERTENSION
     Route: 065
     Dates: start: 2014
  3. ZANIDIP [Concomitant]
     Dates: end: 2014

REACTIONS (2)
  - Loss of consciousness [Unknown]
  - Blood pressure increased [Unknown]
